FAERS Safety Report 8105319-9 (Version None)
Quarter: 2012Q1

REPORT INFORMATION
  Report Type: 
  Country: None (occurrence: None)
  Receive Date: 20120201
  Receipt Date: 20120124
  Transmission Date: 20120608
  Serious: Yes (Other)
  Sender: FDA-Public Use
  Company Number: PHHY2012JP006854

PATIENT
  Sex: Male

DRUGS (2)
  1. ZOMETA [Suspect]
     Indication: METASTASES TO BONE
     Dosage: 04 MG, PER ADMINISTRATION
     Dates: start: 20111201, end: 20120120
  2. CASODEX [Suspect]
     Dosage: 80 MG, DAILY
     Route: 048

REACTIONS (2)
  - PULMONARY OEDEMA [None]
  - RESPIRATORY TRACT INFLAMMATION [None]
